FAERS Safety Report 9321051 (Version 1)
Quarter: 2013Q2

REPORT INFORMATION
  Report Type: Spontaneous
  Country: US (occurrence: None)
  Receive Date: 20130530
  Receipt Date: 20130530
  Transmission Date: 20140414
  Serious: Yes (Death)
  Sender: FDA-Public Use
  Company Number: None

PATIENT
  Age: 61 Year
  Sex: Male
  Weight: 95.26 kg

DRUGS (6)
  1. CETUXIMAB [Suspect]
     Indication: COLON CANCER METASTATIC
     Dosage: 870 MG ONCE IV
     Route: 042
     Dates: start: 20121127, end: 20121127
  2. CETUXIMAB [Suspect]
  3. GRANISETRON [Concomitant]
  4. DEXAMETHASONE [Concomitant]
  5. DIPHENHYDRAMINE [Concomitant]
  6. RANITIDINE [Concomitant]

REACTIONS (3)
  - Dizziness [None]
  - Dizziness [None]
  - Chest discomfort [None]
